FAERS Safety Report 7070511-1 (Version None)
Quarter: 2010Q4

REPORT INFORMATION
  Report Type: 
  Country: None (occurrence: None)
  Receive Date: 20101027
  Receipt Date: 20101027
  Transmission Date: 20110411
  Serious: No
  Sender: FDA-Public Use
  Company Number: None

PATIENT
  Age: 31 Year
  Sex: Female
  Weight: 44.9061 kg

DRUGS (1)
  1. TIOCONAZOLE [Suspect]
     Indication: VULVOVAGINAL MYCOTIC INFECTION
     Dosage: ONE PREFILLED APPLICATOR ONE TIME VAG
     Route: 067
     Dates: start: 20101025, end: 20101026

REACTIONS (3)
  - BURNING SENSATION [None]
  - PRURITUS [None]
  - SWELLING [None]
